FAERS Safety Report 22934085 (Version 2)
Quarter: 2024Q1

REPORT INFORMATION
  Report Type: Spontaneous
  Country: US (occurrence: US)
  Receive Date: 20230912
  Receipt Date: 20240116
  Transmission Date: 20240409
  Serious: Yes (Other)
  Sender: FDA-Public Use
  Company Number: US-BRISTOL-MYERS SQUIBB COMPANY-2023-128093

PATIENT
  Age: 59 Year
  Sex: Female

DRUGS (1)
  1. POMALYST [Suspect]
     Active Substance: POMALIDOMIDE
     Indication: Localised oedema
     Dosage: TAKE 1 WHOLE CAPSULE BY MOUTH EVERY DAY FOR 21 DAYS THEN REST FOR 7 DAYS IN A 28 DAY CYCLE
     Route: 048
     Dates: start: 20210224

REACTIONS (3)
  - Influenza [Recovered/Resolved]
  - Intentional product use issue [Unknown]
  - Illness [Recovered/Resolved]
